FAERS Safety Report 6786340-X (Version None)
Quarter: 2010Q2

REPORT INFORMATION
  Report Type: 
  Country: None (occurrence: None)
  Receive Date: 20100621
  Receipt Date: 20100621
  Transmission Date: 20101027
  Serious: Yes (Other)
  Sender: FDA-Public Use
  Company Number: None

PATIENT
  Age: 61 Year
  Sex: Female
  Weight: 43.5453 kg

DRUGS (1)
  1. ACTONEL [Suspect]
     Indication: OSTEOPOROSIS
     Dosage: 1 PILL 1X PER MONTH PO
     Route: 048
     Dates: start: 20100602, end: 20100602

REACTIONS (7)
  - ACTIVITIES OF DAILY LIVING IMPAIRED [None]
  - ASTHENIA [None]
  - ECONOMIC PROBLEM [None]
  - HAEMOPTYSIS [None]
  - IMPAIRED WORK ABILITY [None]
  - URTICARIA [None]
  - VOMITING [None]
